FAERS Safety Report 15812408 (Version 1)
Quarter: 2018Q4

REPORT INFORMATION
  Report Type: Spontaneous
  Country: US (occurrence: US)
  Receive Date: 20181214
  Receipt Date: 20181214
  Transmission Date: 20190205
  Serious: No
  Sender: FDA-Public Use
  Company Number: None

PATIENT
  Age: 36 Year
  Sex: Female

DRUGS (1)
  1. ESTRADIOL TRANSDERMAL SYSTEM [Suspect]
     Active Substance: ESTRADIOL
     Dosage: ?          OTHER DOSE:4 PATCHES ;OTHER FREQUENCY:Q OTHER DAY;?
     Route: 062
     Dates: start: 20181031

REACTIONS (2)
  - Application site erythema [None]
  - Application site pruritus [None]

NARRATIVE: CASE EVENT DATE: 20181213
